FAERS Safety Report 17886105 (Version 1)
Quarter: 2020Q2

REPORT INFORMATION
  Report Type: Spontaneous
  Country: FR (occurrence: FR)
  Receive Date: 20200611
  Receipt Date: 20200611
  Transmission Date: 20200714
  Serious: Yes (Death)
  Sender: FDA-Public Use
  Company Number: NVSC2020FR162453

PATIENT
  Age: 67 Year
  Sex: Male
  Weight: 75.6 kg

DRUGS (7)
  1. EXFORGE [Suspect]
     Active Substance: AMLODIPINE BESYLATE\VALSARTAN
     Indication: HYPERTENSION
     Dosage: 1 DF, QD
     Route: 048
  2. FLUOROURACIL. [Interacting]
     Active Substance: FLUOROURACIL
     Indication: OESOPHAGEAL CARCINOMA
     Dosage: 2650 MG, CYCLIC
     Route: 041
     Dates: start: 20200309, end: 20200309
  3. DOCETAXEL. [Interacting]
     Active Substance: DOCETAXEL
     Indication: OESOPHAGEAL CARCINOMA
     Dosage: 76 MG
     Route: 041
     Dates: start: 20200309, end: 20200309
  4. CANDESARTAN CILEXETIL. [Interacting]
     Active Substance: CANDESARTAN CILEXETIL
     Indication: HYPERTENSION
     Dosage: 8 MG, QD
     Route: 048
     Dates: start: 20200310
  5. INDAPAMIDE. [Interacting]
     Active Substance: INDAPAMIDE
     Indication: HYPERTENSION
     Dosage: 2.5 MG, QD
     Route: 048
  6. CISPLATINE [Interacting]
     Active Substance: CISPLATIN
     Indication: OESOPHAGEAL CARCINOMA
     Dosage: 76 MG, CYCLIC
     Route: 041
     Dates: start: 20200309, end: 20200309
  7. AUGMENTIN [Interacting]
     Active Substance: AMOXICILLIN\CLAVULANATE POTASSIUM
     Indication: ANTIBIOTIC THERAPY
     Dosage: 3 G, QD
     Route: 042
     Dates: start: 20200303, end: 20200310

REACTIONS (4)
  - Gastrointestinal ischaemia [Fatal]
  - Diarrhoea [Fatal]
  - Hepatic ischaemia [Fatal]
  - Hypovolaemic shock [Fatal]

NARRATIVE: CASE EVENT DATE: 202003
